FAERS Safety Report 13022451 (Version 2)
Quarter: 2017Q1

REPORT INFORMATION
  Report Type: Spontaneous
  Country: CH (occurrence: CH)
  Receive Date: 20161213
  Receipt Date: 20170111
  Transmission Date: 20170428
  Serious: No
  Sender: FDA-Public Use
  Company Number: CH-JNJFOC-20161206462

PATIENT
  Sex: Male

DRUGS (2)
  1. REGAINE [Suspect]
     Active Substance: MINOXIDIL
     Route: 065
  2. REGAINE [Suspect]
     Active Substance: MINOXIDIL
     Indication: PRODUCT USED FOR UNKNOWN INDICATION
     Dosage: FOR ONE MONTH
     Route: 065
     Dates: start: 20161013, end: 20161110

REACTIONS (5)
  - Mood altered [Recovering/Resolving]
  - Asthenia [Recovering/Resolving]
  - Bronchitis [Recovering/Resolving]
  - Anal fistula [Recovering/Resolving]
  - Rash pruritic [Recovering/Resolving]
